FAERS Safety Report 22140403 (Version 1)
Quarter: 2023Q1

REPORT INFORMATION
  Report Type: Spontaneous
  Country: US (occurrence: US)
  Receive Date: 20230327
  Receipt Date: 20230327
  Transmission Date: 20230417
  Serious: Yes (Hospitalization, Other)
  Sender: FDA-Public Use
  Company Number: US-GSKCCFUS-Case-01657889_AE-93579

PATIENT

DRUGS (4)
  1. BENLYSTA [Suspect]
     Active Substance: BELIMUMAB
     Indication: Systemic lupus erythematosus
     Dosage: UNK
     Route: 042
  2. MACROBID [Suspect]
     Active Substance: NITROFURANTOIN\NITROFURANTOIN MONOHYDRATE
     Indication: Product used for unknown indication
     Dosage: UNK
  3. PREDNISONE [Concomitant]
     Active Substance: PREDNISONE
     Indication: Product used for unknown indication
     Dosage: UNK
  4. HYDROXYCHLOROQUINE [Concomitant]
     Active Substance: HYDROXYCHLOROQUINE
     Indication: Product used for unknown indication
     Dosage: UNK

REACTIONS (23)
  - Diarrhoea [Recovering/Resolving]
  - Vomiting [Recovering/Resolving]
  - Nausea [Recovering/Resolving]
  - Dehydration [Unknown]
  - Loss of consciousness [Unknown]
  - Feeding disorder [Unknown]
  - Dizziness [Unknown]
  - Chest pain [Unknown]
  - Headache [Unknown]
  - Head injury [Unknown]
  - Fall [Unknown]
  - Urinary tract infection [Recovered/Resolved]
  - Confusional state [Unknown]
  - Heart rate increased [Unknown]
  - Blood pressure increased [Unknown]
  - Blood glucose decreased [Recovering/Resolving]
  - Hypersomnia [Unknown]
  - Peripheral swelling [Unknown]
  - Burning sensation [Unknown]
  - Photosensitivity reaction [Unknown]
  - Malaise [Not Recovered/Not Resolved]
  - Pancreatic disorder [Unknown]
  - Insulin resistance [Unknown]

NARRATIVE: CASE EVENT DATE: 20221001
